FAERS Safety Report 9009381 (Version 2)
Quarter: 2013Q1

REPORT INFORMATION
  Report Type: Spontaneous
  Country: JP (occurrence: JP)
  Receive Date: 20130111
  Receipt Date: 20130228
  Transmission Date: 20140127
  Serious: Yes (Hospitalization, Disabling)
  Sender: FDA-Public Use
  Company Number: PHHY2013JP002289

PATIENT
  Age: 76 Year
  Sex: Male
  Weight: 61 kg

DRUGS (3)
  1. GLIVEC [Suspect]
     Indication: GASTROINTESTINAL STROMAL TUMOUR
     Dosage: 400 MG, DAILY
     Route: 048
     Dates: start: 20121130, end: 20130112
  2. MUCOSTA [Concomitant]
     Indication: GASTRITIS
     Dosage: 10 MG, UNK
     Route: 048
     Dates: start: 20121130, end: 20130117
  3. PARIET [Concomitant]
     Indication: GASTRITIS
     Dosage: 300 MG, UNK
     Route: 048
     Dates: start: 20121130, end: 20130117

REACTIONS (5)
  - Cerebral infarction [Recovered/Resolved with Sequelae]
  - Muscular weakness [Unknown]
  - Aphasia [Unknown]
  - Nervous system disorder [Unknown]
  - Hemiplegia [Unknown]
